FAERS Safety Report 13360006 (Version 1)
Quarter: 2017Q1

REPORT INFORMATION
  Report Type: Spontaneous
  Country: FR (occurrence: FR)
  Receive Date: 20170322
  Receipt Date: 20170322
  Transmission Date: 20170429
  Serious: Yes (Other)
  Sender: FDA-Public Use
  Company Number: FR-FERRINGPH-2017FE01182

PATIENT

DRUGS (1)
  1. MENOPUR [Suspect]
     Active Substance: FOLLITROPIN\LUTEINIZING HORMONE
     Indication: ASSISTED FERTILISATION
     Dosage: UNK
     Route: 065

REACTIONS (2)
  - Ectopic pregnancy [Unknown]
  - Human chorionic gonadotropin abnormal [Unknown]
